FAERS Safety Report 8861528 (Version 1)
Quarter: 2012Q4

REPORT INFORMATION
  Report Type: Spontaneous
  Country: US (occurrence: None)
  Receive Date: 20121025
  Receipt Date: 20121025
  Transmission Date: 20130627
  Serious: Yes (Hospitalization)
  Sender: FDA-Public Use
  Company Number: None

PATIENT
  Age: 85 Year
  Sex: Male

DRUGS (1)
  1. LOVENOX [Suspect]
     Dosage: 80 mg SUBQ BID
     Route: 058
     Dates: start: 20120523, end: 20120531

REACTIONS (1)
  - Retroperitoneal haematoma [None]
